FAERS Safety Report 10750752 (Version 2)
Quarter: 2015Q1

REPORT INFORMATION
  Report Type: Report from Study
  Country: US (occurrence: US)
  Receive Date: 20150130
  Receipt Date: 20150206
  Transmission Date: 20150721
  Serious: Yes (Other)
  Sender: FDA-Public Use
  Company Number: US-BAYER-2015-000567

PATIENT
  Age: 68 Year
  Sex: Female
  Weight: 77.6 kg

DRUGS (17)
  1. ADEMPAS [Suspect]
     Active Substance: RIOCIGUAT
     Indication: PULMONARY ARTERIAL HYPERTENSION
     Dosage: 0.5 MG, TID
     Route: 048
     Dates: start: 20141229
  2. DIGOX [Concomitant]
     Active Substance: DIGOXIN
     Dosage: UNK
     Dates: start: 20130208
  3. ADEMPAS [Suspect]
     Active Substance: RIOCIGUAT
     Indication: PULMONARY ARTERIAL HYPERTENSION
     Dosage: UNK
     Dates: start: 201408
  4. SPIRIVA [Concomitant]
     Active Substance: TIOTROPIUM BROMIDE MONOHYDRATE
     Dosage: UNK
     Dates: start: 20130208
  5. LEVOTHYROXINE [Concomitant]
     Active Substance: LEVOTHYROXINE
     Dosage: UNK
     Dates: start: 20121102
  6. COUMADIN [Concomitant]
     Active Substance: WARFARIN SODIUM
  7. ACETAMINOPHEN W/HYDROCODONE [Concomitant]
     Active Substance: ACETAMINOPHEN\HYDROCODONE
     Dosage: UNK
     Dates: start: 20140113
  8. ASMANEX [Concomitant]
     Active Substance: MOMETASONE FUROATE
     Dosage: UNK
     Dates: start: 20131207
  9. FUROSEMIDE. [Concomitant]
     Active Substance: FUROSEMIDE
     Dosage: UNK
     Dates: start: 20130208
  10. OXYGEN. [Concomitant]
     Active Substance: OXYGEN
  11. REMODULIN [Suspect]
     Active Substance: TREPROSTINIL
     Indication: PULMONARY ARTERIAL HYPERTENSION
     Dosage: 0.090 ?G/KG
     Route: 058
     Dates: start: 20121102
  12. SPIRONOLACTONE. [Concomitant]
     Active Substance: SPIRONOLACTONE
     Dosage: UNK
     Dates: start: 20130208
  13. POTASSIUM CHLORIDE. [Concomitant]
     Active Substance: POTASSIUM CHLORIDE
     Dosage: UNK
     Dates: start: 20130208
  14. LETAIRIS [Concomitant]
     Active Substance: AMBRISENTAN
     Dosage: UNK
     Dates: start: 20121023
  15. LOPERAMIDE [Concomitant]
     Active Substance: LOPERAMIDE
     Dosage: UNK
     Dates: start: 20130508
  16. GABAPENTIN. [Concomitant]
     Active Substance: GABAPENTIN
     Dosage: UNK
     Dates: start: 20130311
  17. BUPROPION [Concomitant]
     Active Substance: BUPROPION
     Dosage: UNK
     Dates: start: 20120912

REACTIONS (19)
  - Confusional state [Unknown]
  - Abdominal pain upper [Not Recovered/Not Resolved]
  - Treatment noncompliance [Unknown]
  - Suffocation feeling [None]
  - Ear pain [Unknown]
  - Diarrhoea [Not Recovered/Not Resolved]
  - Hernia [Not Recovered/Not Resolved]
  - Nausea [Not Recovered/Not Resolved]
  - Dyspnoea [None]
  - Muscle spasms [Not Recovered/Not Resolved]
  - Balance disorder [Unknown]
  - Headache [Unknown]
  - Adverse drug reaction [Unknown]
  - Cataract [Unknown]
  - Malaise [Not Recovered/Not Resolved]
  - Nasal congestion [Unknown]
  - Adverse event [None]
  - Decreased appetite [Unknown]
  - Abdominal pain [Unknown]

NARRATIVE: CASE EVENT DATE: 20141121
